FAERS Safety Report 20133861 (Version 1)
Quarter: 2021Q4

REPORT INFORMATION
  Report Type: Spontaneous
  Country: JP (occurrence: JP)
  Receive Date: 20211201
  Receipt Date: 20211201
  Transmission Date: 20220303
  Serious: Yes (Other)
  Sender: FDA-Public Use
  Company Number: JP-CHUGAI-2021023280

PATIENT
  Age: 71 Year
  Sex: Male
  Weight: 55.8 kg

DRUGS (7)
  1. TECENTRIQ [Suspect]
     Active Substance: ATEZOLIZUMAB
     Indication: Non-small cell lung cancer
     Dosage: 1200 MILLIGRAM, SINGLE
     Route: 041
     Dates: start: 20211006, end: 20211006
  2. AVASTIN [Suspect]
     Active Substance: BEVACIZUMAB
     Indication: Non-small cell lung cancer
     Dosage: 2 DOSAGE FORM, SINGLE
     Route: 041
     Dates: start: 20211006, end: 20211006
  3. AVASTIN [Suspect]
     Active Substance: BEVACIZUMAB
     Dosage: 1 DOSAGE FORM, ONCE/3WEEKS
     Route: 041
  4. PARAPLATIN [Suspect]
     Active Substance: CARBOPLATIN
     Indication: Non-small cell lung cancer
     Dosage: 520 MILLIGRAM, ONCE/3WEEKS
     Route: 041
     Dates: start: 20211006
  5. MEROPENEM [Suspect]
     Active Substance: MEROPENEM
     Indication: Non-small cell lung cancer
     Dosage: 0.5 GRAM, BID
     Route: 041
     Dates: start: 20211013, end: 20211016
  6. PACLITAXEL [Suspect]
     Active Substance: PACLITAXEL
     Indication: Non-small cell lung cancer
     Route: 041
     Dates: start: 20211006
  7. CARBOPLATIN [Concomitant]
     Active Substance: CARBOPLATIN
     Indication: Non-small cell lung cancer
     Dosage: UNK
     Route: 041
     Dates: start: 20211006

REACTIONS (1)
  - Skin disorder [Recovered/Resolved]

NARRATIVE: CASE EVENT DATE: 20211016
